FAERS Safety Report 14450016 (Version 5)
Quarter: 2018Q1

REPORT INFORMATION
  Report Type: Report from Study
  Country: CN (occurrence: CN)
  Receive Date: 20180129
  Receipt Date: 20180219
  Transmission Date: 20180509
  Serious: Yes (Disabling)
  Sender: FDA-Public Use
  Company Number: CN-AMGEN-CHNCT2018010576

PATIENT
  Age: 24 Year
  Sex: Female
  Weight: 71 kg

DRUGS (4)
  1. LIDOCAINE HYDROCHLORIDE. [Concomitant]
     Active Substance: LIDOCAINE HYDROCHLORIDE
     Dosage: 5 MG, UNK
     Route: 058
     Dates: start: 20180110, end: 20180110
  2. DEXAMETHASONE. [Concomitant]
     Active Substance: DEXAMETHASONE
     Dosage: 10 MG, UNK
     Dates: start: 20180116, end: 20180123
  3. ALLOPURINOL. [Concomitant]
     Active Substance: ALLOPURINOL
     Dosage: 0.1 G, UNK
     Route: 048
     Dates: start: 20180110, end: 20180110
  4. BLINATUMOMAB [Suspect]
     Active Substance: BLINATUMOMAB
     Indication: B PRECURSOR TYPE ACUTE LEUKAEMIA
     Dosage: 1 UNK, QD
     Route: 042
     Dates: start: 20180116

REACTIONS (1)
  - Hypoacusis [Recovered/Resolved]

NARRATIVE: CASE EVENT DATE: 20180121
